FAERS Safety Report 12957233 (Version 3)
Quarter: 2017Q3

REPORT INFORMATION
  Report Type: Report from Study
  Country: US (occurrence: US)
  Receive Date: 20161118
  Receipt Date: 20170731
  Transmission Date: 20171127
  Serious: Yes (Other)
  Sender: FDA-Public Use
  Company Number: US-PFIZER INC-2016528579

PATIENT
  Age: 74 Year
  Sex: Female

DRUGS (2)
  1. VANCOMYCIN HCL [Suspect]
     Active Substance: VANCOMYCIN HYDROCHLORIDE
     Indication: CATARACT OPERATION
     Dosage: UNK, 1 MG/0.1 ML
     Route: 047
  2. VISOELASTIC [Concomitant]
     Indication: CATARACT OPERATION
     Dosage: UNK
     Route: 047

REACTIONS (2)
  - Retinal vasculitis [Unknown]
  - Haemorrhagic vasculitis [Unknown]
